FAERS Safety Report 6978910-0 (Version None)
Quarter: 2010Q3

REPORT INFORMATION
  Report Type: 
  Country: None (occurrence: None)
  Receive Date: 20100913
  Receipt Date: 20100902
  Transmission Date: 20110219
  Serious: Yes (Hospitalization)
  Sender: FDA-Public Use
  Company Number: FR-JNJFOC-20100603222

PATIENT
  Age: 52 Year
  Sex: Female

DRUGS (9)
  1. REMICADE [Suspect]
     Indication: ANKYLOSING SPONDYLITIS
     Route: 042
  2. REMICADE [Suspect]
     Dosage: 11TH INFUSION
     Route: 042
  3. REMICADE [Suspect]
     Dosage: 230 MG
     Route: 042
  4. REMICADE [Suspect]
     Dosage: 230 MG
     Route: 042
  5. REMICADE [Suspect]
     Route: 042
  6. METHOTREXATE [Suspect]
     Indication: ANKYLOSING SPONDYLITIS
     Dosage: 5-15 MG/WEEK
     Route: 048
  7. ENBREL [Suspect]
     Indication: ANKYLOSING SPONDYLITIS
     Route: 058
  8. HUMIRA [Suspect]
     Indication: ANKYLOSING SPONDYLITIS
     Dosage: EVERY 2-3 WEEKS
     Route: 058
  9. NSAID [Concomitant]
     Indication: ANKYLOSING SPONDYLITIS

REACTIONS (5)
  - ANKYLOSING SPONDYLITIS [None]
  - GASTROINTESTINAL DISORDER [None]
  - MYELODYSPLASTIC SYNDROME [None]
  - SKIN REACTION [None]
  - TREATMENT FAILURE [None]
